FAERS Safety Report 4284208-4 (Version None)
Quarter: 2004Q1

REPORT INFORMATION
  Report Type: 
  Country: None (occurrence: None)
  Receive Date: 20040130
  Receipt Date: 20040119
  Transmission Date: 20041129
  Serious: Yes (Death, Life-Threatening, Hospitalization)
  Sender: FDA-Public Use
  Company Number: PL-JNJFOC-20040103528

PATIENT
  Age: 50 Year
  Sex: Female
  Weight: 48 kg

DRUGS (3)
  1. REMICADE [Suspect]
     Indication: CROHN'S DISEASE
     Dosage: 200 MG, 1 IN 1 DAY, INTRAVENOUS
     Route: 042
     Dates: start: 20040108, end: 20040108
  2. CIPROFLOXACINE (CIPROFLOXACIN) [Concomitant]
  3. POLCORTOLON (TRIAMCINOLOLNE ACETONIDE) [Concomitant]

REACTIONS (6)
  - CACHEXIA [None]
  - DIARRHOEA [None]
  - ELECTROLYTE IMBALANCE [None]
  - HYPOPROTEINAEMIA [None]
  - PYREXIA [None]
  - SENSATION OF HEAVINESS [None]
